FAERS Safety Report 20175702 (Version 2)
Quarter: 2021Q4

REPORT INFORMATION
  Report Type: Spontaneous
  Country: US (occurrence: US)
  Receive Date: 20211213
  Receipt Date: 20211215
  Transmission Date: 20220303
  Serious: Yes (Life-Threatening, Other)
  Sender: FDA-Public Use
  Company Number: US-PFIZER INC-202101690136

PATIENT
  Age: 75 Year
  Sex: Male

DRUGS (1)
  1. LIDOCAINE HYDROCHLORIDE [Suspect]
     Active Substance: LIDOCAINE HYDROCHLORIDE
     Indication: Local anaesthesia
     Dosage: 15ML OF 4% VISCOUS LIDOCAINE
     Route: 061

REACTIONS (4)
  - Seizure like phenomena [Unknown]
  - Toxicity to various agents [Unknown]
  - Neurotoxicity [Unknown]
  - Cardiac arrest [Unknown]
